FAERS Safety Report 13599524 (Version 2)
Quarter: 2017Q2

REPORT INFORMATION
  Report Type: Spontaneous
  Country: AU (occurrence: AU)
  Receive Date: 20170601
  Receipt Date: 20170601
  Transmission Date: 20170830
  Serious: Yes (Other)
  Sender: FDA-Public Use
  Company Number: PHHY2017AU075498

PATIENT
  Age: 43 Year
  Sex: Female

DRUGS (1)
  1. ALPHACLAV DUO 875/125 [Suspect]
     Active Substance: AMOXICILLIN\CLAVULANATE POTASSIUM
     Indication: OTITIS MEDIA
     Route: 065

REACTIONS (7)
  - Dizziness [Recovering/Resolving]
  - Haematochezia [Recovered/Resolved]
  - Peripheral swelling [Recovering/Resolving]
  - Fluid retention [Recovered/Resolved]
  - Hypersensitivity [Recovering/Resolving]
  - Vomiting [Recovered/Resolved]
  - Lethargy [Recovering/Resolving]
